FAERS Safety Report 6145057-5 (Version None)
Quarter: 2009Q2

REPORT INFORMATION
  Report Type: 
  Country: None (occurrence: None)
  Receive Date: 20090401
  Receipt Date: 20090401
  Transmission Date: 20091009
  Serious: Yes (Hospitalization)
  Sender: FDA-Public Use
  Company Number: None

PATIENT
  Age: 81 Year
  Sex: Male
  Weight: 56 kg

DRUGS (12)
  1. WARFARIN SODIUM [Suspect]
     Indication: ATRIAL FIBRILLATION
     Dosage: 2 MG DAILY PO PRIOR TO ADMSSION
     Route: 048
  2. FLUTICASONE/SALMETEROL INHALER [Concomitant]
  3. IPRATROPIUM INHALER [Concomitant]
  4. ALBUTEROL [Concomitant]
  5. SIMVASTATIN [Concomitant]
  6. VITAMIN D [Concomitant]
  7. ASCORBIC ACID [Concomitant]
  8. GLUCOSAMINE [Concomitant]
  9. MULTI-VITAMIN [Concomitant]
  10. FISH OIL [Concomitant]
  11. TAMSULOSIN HCL [Concomitant]
  12. NYSTATIN [Concomitant]

REACTIONS (3)
  - EPISTAXIS [None]
  - INTERNATIONAL NORMALISED RATIO INCREASED [None]
  - ORAL CANDIDIASIS [None]
